FAERS Safety Report 25825015 (Version 2)
Quarter: 2025Q4

REPORT INFORMATION
  Report Type: Other
  Country: US (occurrence: US)
  Receive Date: 20250919
  Receipt Date: 20251118
  Transmission Date: 20260118
  Serious: No
  Sender: TRAVERE THERAPEUTICS
  Company Number: US-TRAVERE-2025TVT01125

PATIENT
  Age: 39 Year
  Sex: Female

DRUGS (1)
  1. FILSPARI [Suspect]
     Active Substance: SPARSENTAN
     Indication: IgA nephropathy
     Route: 048
     Dates: start: 20250701

REACTIONS (14)
  - Feeling abnormal [Unknown]
  - Back pain [Unknown]
  - Fatigue [Unknown]
  - Pain [Unknown]
  - Cough [Unknown]
  - Dehydration [Recovering/Resolving]
  - Hypotension [Recovering/Resolving]
  - Oliguria [Unknown]
  - Chromaturia [Unknown]
  - Decreased appetite [Unknown]
  - Dizziness [Unknown]
  - Nausea [Unknown]
  - Vomiting [Unknown]
  - Diarrhoea [Unknown]

NARRATIVE: CASE EVENT DATE: 20250706
